FAERS Safety Report 7523457-6 (Version None)
Quarter: 2011Q2

REPORT INFORMATION
  Report Type: 
  Country: None (occurrence: None)
  Receive Date: 20110603
  Receipt Date: 20110523
  Transmission Date: 20111010
  Serious: Yes (Other)
  Sender: FDA-Public Use
  Company Number: PHHY2011US38018

PATIENT
  Sex: Male
  Weight: 90 kg

DRUGS (4)
  1. EXJADE [Suspect]
     Indication: IRON METABOLISM DISORDER
     Dosage: 1500 MG, QD
     Route: 048
     Dates: start: 20110325, end: 20110405
  2. VALTREX [Concomitant]
     Indication: PROPHYLAXIS
     Dosage: 500 MG, DAILY
     Route: 048
     Dates: start: 20100909
  3. EXJADE [Suspect]
     Dosage: 500 MG, UNK
     Route: 048
  4. DIFLUCAN [Concomitant]
     Indication: PROPHYLAXIS
     Dosage: 200 MG, DAILY
     Route: 048
     Dates: start: 20081223

REACTIONS (5)
  - NAUSEA [None]
  - OEDEMA PERIPHERAL [None]
  - EYELID INFECTION [None]
  - MOOD SWINGS [None]
  - HEADACHE [None]
